FAERS Safety Report 14308989 (Version 1)
Quarter: 2017Q4

REPORT INFORMATION
  Report Type: Spontaneous
  Country: US (occurrence: US)
  Receive Date: 20171219
  Receipt Date: 20171219
  Transmission Date: 20180321
  Serious: Yes (Hospitalization)
  Sender: FDA-Public Use
  Company Number: None

PATIENT
  Age: 69 Year
  Sex: Male
  Weight: 93.6 kg

DRUGS (1)
  1. SIMVASTATIN. [Suspect]
     Active Substance: SIMVASTATIN
     Indication: HYPERLIPIDAEMIA
     Route: 048
     Dates: start: 20080603, end: 20161004

REACTIONS (18)
  - Fall [None]
  - Post procedural complication [None]
  - Muscle injury [None]
  - Dehydration [None]
  - Spinal osteoarthritis [None]
  - Hypertension [None]
  - Muscular weakness [None]
  - Arteriosclerosis [None]
  - Mobility decreased [None]
  - Drug screen false positive [None]
  - Orthostatic hypotension [None]
  - Autonomic nervous system imbalance [None]
  - Type 2 diabetes mellitus [None]
  - Depression [None]
  - Rhabdomyolysis [None]
  - Post-traumatic stress disorder [None]
  - Urinary incontinence [None]
  - Prostate cancer [None]

NARRATIVE: CASE EVENT DATE: 20161004
